FAERS Safety Report 24737315 (Version 1)
Quarter: 2024Q4

REPORT INFORMATION
  Report Type: Spontaneous
  Country: ES (occurrence: ES)
  Receive Date: 20241216
  Receipt Date: 20241216
  Transmission Date: 20250115
  Serious: Yes (Other)
  Sender: BOEHRINGER INGELHEIM
  Company Number: None

PATIENT
  Age: 72 Year
  Sex: Female

DRUGS (12)
  1. SYNJARDY [Suspect]
     Active Substance: EMPAGLIFLOZIN\METFORMIN HYDROCHLORIDE
     Indication: Type 2 diabetes mellitus
     Dosage: 1.0 TABLET
     Route: 048
     Dates: start: 20240417, end: 20241024
  2. NUCALA 100 MG SOLUCION INYECTABLE EN PLUMA PRECARGADA, 1 pluma precarg [Concomitant]
     Indication: Asthma
     Route: 058
     Dates: start: 20220920
  3. LOSARTAN NORMON 100 mg COMPRIMIDOS RECUBIERTOS CON PELICULA EFG, 28 co [Concomitant]
     Indication: Essential hypertension
     Route: 048
     Dates: start: 20230906
  4. AMILORIDE HYDROCHLORIDE\HYDROCHLOROTHIAZIDE [Concomitant]
     Active Substance: AMILORIDE HYDROCHLORIDE\HYDROCHLOROTHIAZIDE
     Indication: Hypertension
     Dosage: 1.0 TABLET BREAKFAST
     Route: 048
     Dates: start: 20170125
  5. VENTOLIN 100 microgramos/INHALACI?N SUSPENSI?N PARA INHALACI?N EN ENVA [Concomitant]
     Indication: Bronchitis
     Dosage: 200.0 MCG BREAKFAST LUNCH SUPPER
     Dates: start: 20091016
  6. CYANOCOBALAMIN [Concomitant]
     Active Substance: CYANOCOBALAMIN
     Indication: Vitamin B complex deficiency
     Route: 030
     Dates: start: 20240503
  7. AVAMYS 27,5 MICROGRAMOS/PULVERIZACION, SUSPENSION PARA PULVERIZACION N [Concomitant]
     Indication: Asthma
     Route: 045
     Dates: start: 20131002
  8. LEVOTHYROXINE SODIUM [Concomitant]
     Active Substance: LEVOTHYROXINE SODIUM
     Indication: Post procedural hypothyroidism
     Dosage: BEFORE BREAKFAST
     Route: 048
     Dates: start: 20181003
  9. EBASTEL FLAS 10 mg LIOFILIZADOS ORALES, 20 liofilizados [Concomitant]
     Indication: Hypersensitivity
     Dosage: BREAKFAST
     Route: 048
     Dates: start: 20201106
  10. ATORVASTATIN [Concomitant]
     Active Substance: ATORVASTATIN
     Indication: Type 2 diabetes mellitus
     Dosage: 20.0 MG SUPPER
     Route: 048
     Dates: start: 20230113
  11. PARACETAMOL CINFA 650 MG COMPRIMIDOS EFG 40 comprimidos [Concomitant]
     Indication: Joint contracture
     Dosage: BREAKFAST LUNCH SUPPER
     Route: 048
     Dates: start: 20240521
  12. Trimbow 172 microgramos/5 microgramos/9 microgramos soluci?n para inha [Concomitant]
     Indication: Asthma
     Dosage: 2.0 PUFF EVERY 12 H
     Dates: start: 20240417

REACTIONS (1)
  - Vulvovaginal pruritus [Recovered/Resolved]

NARRATIVE: CASE EVENT DATE: 20240601
